FAERS Safety Report 19065617 (Version 4)
Quarter: 2021Q4

REPORT INFORMATION
  Report Type: Report from Study
  Country: GB (occurrence: GB)
  Receive Date: 20210327
  Receipt Date: 20211105
  Transmission Date: 20220303
  Serious: Yes (Other)
  Sender: FDA-Public Use
  Company Number: GB-TAKEDA-2021TUS017514

PATIENT
  Age: 30 Year
  Sex: Female

DRUGS (1)
  1. VEDOLIZUMAB [Suspect]
     Active Substance: VEDOLIZUMAB
     Indication: Colitis ulcerative
     Dosage: 108 MILLIGRAM, Q2WEEKS
     Route: 058

REACTIONS (9)
  - Haematochezia [Unknown]
  - Lower respiratory tract infection [Unknown]
  - Infection [Unknown]
  - Diarrhoea [Unknown]
  - Abdominal pain [Unknown]
  - Mucous stools [Unknown]
  - Subcutaneous abscess [Unknown]
  - Drug ineffective [Unknown]
  - Product dose omission issue [Unknown]
